FAERS Safety Report 13465478 (Version 1)
Quarter: 2017Q2

REPORT INFORMATION
  Report Type: Spontaneous
  Country: US (occurrence: US)
  Receive Date: 20170420
  Receipt Date: 20170420
  Transmission Date: 20170830
  Serious: No
  Sender: FDA-Public Use
  Company Number: None

PATIENT
  Age: 41 Year
  Sex: Female

DRUGS (2)
  1. MYCOPHENOLIC TAB 180MG DR [Suspect]
     Active Substance: MYCOPHENOLIC ACID
     Indication: RENAL TRANSPLANT
     Dosage: 180MG 3T BID PO
     Route: 048
     Dates: start: 20160405
  2. MYCOPHENOLIC TAB 180MG DR [Suspect]
     Active Substance: MYCOPHENOLIC ACID
     Indication: ANAEMIA FOLATE DEFICIENCY
     Dosage: 180MG 3T BID PO
     Route: 048
     Dates: start: 20160405

REACTIONS (1)
  - Acne [None]

NARRATIVE: CASE EVENT DATE: 20170420
